FAERS Safety Report 7605569-1 (Version None)
Quarter: 2011Q3

REPORT INFORMATION
  Report Type: 
  Country: None (occurrence: None)
  Receive Date: 20110713
  Receipt Date: 20110705
  Transmission Date: 20111222
  Serious: No
  Sender: FDA-Public Use
  Company Number: US-B.I. PHARMACEUTICALS,INC./RIDGEFIELD-2011-BP-01087BP

PATIENT
  Sex: Female

DRUGS (12)
  1. LISINOPRIL [Concomitant]
     Indication: HYPERTENSION
     Dosage: 30 MG
  2. ASPIRIN [Concomitant]
     Dosage: 81 MG
  3. OMEPRAZOLE [Concomitant]
     Indication: GASTROOESOPHAGEAL REFLUX DISEASE
  4. GLUCOSAMINE [Concomitant]
  5. ALPHA LIPOIC ACID [Concomitant]
     Indication: BACK PAIN
  6. DILTIAZEM [Concomitant]
     Indication: HYPERTENSION
     Dosage: 240 MG
  7. PRADAXA [Suspect]
     Indication: ATRIAL FIBRILLATION
     Dosage: 300 MG
     Route: 048
     Dates: start: 20110101
  8. METOPROLOL TARTRATE [Concomitant]
     Indication: HYPERTENSION
  9. DIGOXIN [Concomitant]
  10. HYDROCHLOROTHIAZIDE [Concomitant]
     Indication: HYPERTENSION
  11. SIMVASTATIN [Concomitant]
     Indication: BLOOD CHOLESTEROL INCREASED
     Dosage: 20 MG
  12. FISH OIL [Concomitant]

REACTIONS (7)
  - SNEEZING [None]
  - INITIAL INSOMNIA [None]
  - NAUSEA [None]
  - RHINORRHOEA [None]
  - MIDDLE INSOMNIA [None]
  - OEDEMA PERIPHERAL [None]
  - DIZZINESS [None]
